FAERS Safety Report 9331483 (Version 1)
Quarter: 2013Q2

REPORT INFORMATION
  Report Type: Spontaneous
  Country: BR (occurrence: BR)
  Receive Date: 20130605
  Receipt Date: 20130605
  Transmission Date: 20140414
  Serious: Yes (Hospitalization, Other)
  Sender: FDA-Public Use
  Company Number: BR-PFIZER INC-2013168020

PATIENT
  Sex: Male

DRUGS (6)
  1. LIPITOR [Suspect]
     Indication: ARTERIAL DISORDER
     Dosage: 80 MG, 1X/DAY
     Route: 048
     Dates: start: 2008
  2. PANTOPRAZOLE SODIUM [Concomitant]
     Dosage: UNK
  3. RETINOL [Concomitant]
     Dosage: UNK
  4. SOMALGIN [Concomitant]
     Dosage: UNK
     Dates: start: 2007
  5. SUSTRATE [Concomitant]
     Dosage: UNK
  6. FOLIN [Concomitant]
     Dosage: UNK

REACTIONS (3)
  - Infarction [Unknown]
  - Cardiac disorder [Unknown]
  - Systemic lupus erythematosus [Not Recovered/Not Resolved]
